FAERS Safety Report 21607944 (Version 1)
Quarter: 2022Q4

REPORT INFORMATION
  Report Type: Spontaneous
  Country: CN (occurrence: CN)
  Receive Date: 20221117
  Receipt Date: 20221117
  Transmission Date: 20230113
  Serious: Yes (Other)
  Sender: FDA-Public Use
  Company Number: CN-009507513-2211CHN004319

PATIENT
  Age: 86 Year
  Sex: Male
  Weight: 80 kg

DRUGS (2)
  1. CILASTATIN SODIUM\IMIPENEM [Suspect]
     Active Substance: CILASTATIN SODIUM\IMIPENEM
     Indication: Pneumonia
     Dosage: 500 MG, FREQUENCY: EVERY 8 HOURS (Q8H)
     Route: 041
     Dates: start: 20221024, end: 20221106
  2. SODIUM CHLORIDE [Concomitant]
     Active Substance: SODIUM CHLORIDE
     Dosage: 100 ML, FREQUENCY: EVERY 8 HOURS (Q8H)
     Route: 041
     Dates: start: 20221024, end: 20221106

REACTIONS (3)
  - Delirium [Recovering/Resolving]
  - Hallucination [Recovering/Resolving]
  - Screaming [Recovering/Resolving]

NARRATIVE: CASE EVENT DATE: 20221106
